FAERS Safety Report 10090706 (Version 3)
Quarter: 2014Q2

REPORT INFORMATION
  Report Type: Spontaneous
  Country: US (occurrence: US)
  Receive Date: 20140421
  Receipt Date: 20140530
  Transmission Date: 20141212
  Serious: Yes (Hospitalization)
  Sender: FDA-Public Use
  Company Number: US-PFIZER INC-2014107171

PATIENT
  Age: 54 Year
  Sex: Female
  Weight: 81.63 kg

DRUGS (10)
  1. LYRICA [Suspect]
     Indication: NEUROPATHY PERIPHERAL
     Dosage: 75 MG, 2X/DAY
  2. EFFEXOR XR [Suspect]
     Indication: DEPRESSION
     Dosage: 75 MG, 2X/DAY
     Dates: start: 2014
  3. EFFEXOR XR [Suspect]
     Indication: ANXIETY
  4. PROTONIX [Suspect]
     Indication: GASTROOESOPHAGEAL REFLUX DISEASE
     Dosage: 40 MG, DAILY
  5. CADUET [Suspect]
     Indication: HYPERTENSION
     Dosage: 10/10MG, DAILY
  6. CADUET [Suspect]
     Indication: BLOOD CHOLESTEROL INCREASED
  7. METFORMIN [Concomitant]
     Indication: DIABETES MELLITUS
     Dosage: 1000 MG, 2X/DAY
  8. LANTUS [Concomitant]
     Indication: DIABETES MELLITUS
     Dosage: UNK
  9. GLYBURIDE [Concomitant]
     Indication: DIABETES MELLITUS
     Dosage: 5 MG, UNK
  10. LISINOPRIL W/HYDROCHLOROTHIAZIDE [Concomitant]
     Indication: HYPERTENSION
     Dosage: UNK

REACTIONS (1)
  - Pain in extremity [Unknown]
